FAERS Safety Report 11283793 (Version 1)
Quarter: 2015Q3

REPORT INFORMATION
  Report Type: Spontaneous
  Country: US (occurrence: US)
  Receive Date: 20150720
  Receipt Date: 20150720
  Transmission Date: 20151125
  Serious: No
  Sender: FDA-Public Use
  Company Number: US-PFIZER INC-2015075883

PATIENT
  Sex: Female

DRUGS (1)
  1. XALKORI [Suspect]
     Active Substance: CRIZOTINIB
     Indication: SARCOMA UTERUS
     Dosage: 250 MG, UNK
     Route: 048

REACTIONS (3)
  - Product use issue [Unknown]
  - Disease progression [Unknown]
  - Sarcoma uterus [Unknown]
